FAERS Safety Report 7661345-5 (Version None)
Quarter: 2011Q3

REPORT INFORMATION
  Report Type: 
  Country: None (occurrence: None)
  Receive Date: 20110805
  Receipt Date: 20100923
  Transmission Date: 20111222
  Serious: No
  Sender: FDA-Public Use
  Company Number: US-ABBOTT-10P-163-0673642-00

PATIENT
  Sex: Male
  Weight: 118.04 kg

DRUGS (4)
  1. UNKNOWN BLOOD PRESSURE MEDICATION [Concomitant]
     Indication: HYPERTENSION
  2. NIASPAN [Suspect]
     Indication: BLOOD CHOLESTEROL INCREASED
     Dosage: 500MG EVERY NIGHT
     Dates: start: 20100809
  3. ALLOPURINOL [Concomitant]
     Indication: GOUT
  4. METFORMIN HCL [Concomitant]
     Indication: DIABETES MELLITUS

REACTIONS (2)
  - SKIN BURNING SENSATION [None]
  - HEART RATE ABNORMAL [None]
